FAERS Safety Report 10459791 (Version 2)
Quarter: 2014Q3

REPORT INFORMATION
  Report Type: Spontaneous
  Country: BR (occurrence: BR)
  Receive Date: 20140917
  Receipt Date: 20140922
  Transmission Date: 20150326
  Serious: Yes (Hospitalization, Other)
  Sender: FDA-Public Use
  Company Number: BR-JNJFOC-20140908499

PATIENT

DRUGS (1)
  1. INFLIXIMAB, RECOMBINANT [Suspect]
     Active Substance: INFLIXIMAB
     Indication: PSORIASIS
     Route: 042

REACTIONS (10)
  - Drug ineffective [Unknown]
  - Investigation [Unknown]
  - Renal injury [Unknown]
  - Hypertension [Recovering/Resolving]
  - Pneumonia [Unknown]
  - Local reaction [Unknown]
  - Arrhythmia [Unknown]
  - Blood disorder [Unknown]
  - Liver disorder [Unknown]
  - Condition aggravated [Unknown]
